FAERS Safety Report 7797272-2 (Version None)
Quarter: 2011Q4

REPORT INFORMATION
  Report Type: 
  Country: None (occurrence: None)
  Receive Date: 20111005
  Receipt Date: 20110923
  Transmission Date: 20120403
  Serious: Yes (Hospitalization, Other)
  Sender: FDA-Public Use
  Company Number: US-BAYER-2011-020066

PATIENT
  Age: 37 Year
  Sex: Female
  Weight: 113.38 kg

DRUGS (16)
  1. DROSPIRENONE AND ETHINYL ESTRADIOL [Suspect]
     Indication: PREMENSTRUAL SYNDROME
     Dosage: UNK
     Dates: start: 20070101, end: 20091101
  2. SERTRALINE HYDROCHLORIDE [Concomitant]
     Dosage: 50 MG, UNK
  3. VITAMIN D [Concomitant]
     Indication: HYPOVITAMINOSIS
     Dosage: 50000 U, UNK
     Route: 048
     Dates: start: 20080101, end: 20100101
  4. PHENTERMINE [Concomitant]
     Dosage: UNK
  5. DROSPIRENONE AND ETHINYL ESTRADIOL [Suspect]
     Indication: CONTRACEPTION
     Dosage: UNK
     Route: 048
     Dates: start: 20020501, end: 20020901
  6. YASMIN [Suspect]
     Indication: CONTRACEPTION
     Dosage: UNK
     Route: 048
     Dates: start: 20020501, end: 20020901
  7. PROZAC [Concomitant]
     Indication: DEPRESSION
     Dosage: 20 MG, UNK
     Route: 048
     Dates: start: 20050101, end: 20090101
  8. REGLAN [Concomitant]
     Dosage: 5 MG, UNK
     Dates: start: 20090107
  9. LEVAQUIN [Concomitant]
     Dosage: 750 MG, UNK
     Dates: start: 20081222
  10. NITROFURANTOIN [Concomitant]
     Dosage: 100 MG, UNK
     Dates: start: 20081021
  11. YASMIN [Suspect]
     Indication: PREMENSTRUAL SYNDROME
     Dosage: UNK
     Dates: start: 20070101, end: 20091101
  12. BACLOFEN [Concomitant]
     Dosage: 10 MG, UNK
     Route: 048
     Dates: start: 20090105
  13. LISINOPRIL [Concomitant]
     Indication: HYPERTENSION
     Dosage: 10 MG, UNK
     Route: 048
     Dates: start: 20080201, end: 20090101
  14. HYDROCHLOROTHIAZIDE [Concomitant]
     Indication: HYPERTENSION
     Dosage: 5 MG, UNK
     Route: 048
     Dates: start: 20070101
  15. NOREL [Concomitant]
  16. PRILOSEC [Concomitant]
     Dosage: 20 MG, QD

REACTIONS (5)
  - CHOLECYSTECTOMY [None]
  - INJURY [None]
  - BILIARY DYSKINESIA [None]
  - CHOLECYSTITIS CHRONIC [None]
  - PAIN [None]
